FAERS Safety Report 17442192 (Version 1)
Quarter: 2020Q1

REPORT INFORMATION
  Report Type: Spontaneous
  Country: US (occurrence: US)
  Receive Date: 20200220
  Receipt Date: 20200220
  Transmission Date: 20200409
  Serious: No
  Sender: FDA-Public Use
  Company Number: US-TOLMAR, INC.-19US019772

PATIENT

DRUGS (1)
  1. ELIGARD [Suspect]
     Active Substance: LEUPROLIDE ACETATE
     Indication: PROSTATE CANCER
     Dosage: 45 MG Q MONTHS
     Route: 058
     Dates: start: 20191223

REACTIONS (2)
  - Syringe issue [None]
  - Product preparation error [None]

NARRATIVE: CASE EVENT DATE: 20191223
